FAERS Safety Report 25367776 (Version 1)
Quarter: 2025Q2

REPORT INFORMATION
  Report Type: Other
  Country: GB (occurrence: GB)
  Receive Date: 20250528
  Receipt Date: 20250528
  Transmission Date: 20250716
  Serious: Yes (Disabling, Other)
  Sender: GLENMARK
  Company Number: None

PATIENT
  Age: 78 Year
  Sex: Male

DRUGS (1)
  1. SOLIFENACIN SUCCINATE [Suspect]
     Active Substance: SOLIFENACIN SUCCINATE
     Indication: Dysuria
     Dosage: 5 MILLIGRAM, OD
     Route: 065
     Dates: start: 20241118, end: 20250109

REACTIONS (1)
  - Amnesia [Recovered/Resolved with Sequelae]
